FAERS Safety Report 12444930 (Version 1)
Quarter: 2016Q2

REPORT INFORMATION
  Report Type: Spontaneous
  Country: IT (occurrence: IT)
  Receive Date: 20160607
  Receipt Date: 20160607
  Transmission Date: 20160815
  Serious: Yes (Other)
  Sender: FDA-Public Use
  Company Number: IT-ELI_LILLY_AND_COMPANY-IT201605009553

PATIENT
  Sex: Female

DRUGS (2)
  1. LAROXYL [Concomitant]
     Active Substance: AMITRIPTYLINE
     Indication: DEPRESSION
     Dosage: UNK, UNKNOWN
     Route: 065
     Dates: start: 20160502
  2. FORSTEO [Suspect]
     Active Substance: TERIPARATIDE
     Indication: SPINAL COMPRESSION FRACTURE
     Dosage: UNK UNK, UNKNOWN
     Route: 065
     Dates: start: 20160512

REACTIONS (3)
  - Fatigue [Unknown]
  - Off label use [Unknown]
  - Arrhythmia [Unknown]

NARRATIVE: CASE EVENT DATE: 201605
